FAERS Safety Report 21018204 (Version 1)
Quarter: 2022Q2

REPORT INFORMATION
  Report Type: Spontaneous
  Country: US (occurrence: None)
  Receive Date: 20220627
  Receipt Date: 20220627
  Transmission Date: 20220721
  Serious: Yes (Hospitalization)
  Sender: FDA-Public Use
  Company Number: None

PATIENT
  Age: 24 Year
  Sex: Male

DRUGS (11)
  1. PULMOZYME [Suspect]
     Active Substance: DORNASE ALFA
     Indication: Cystic fibrosis gastrointestinal disease
     Dosage: 2.5 MG/2.5ML  INHALATION??USE 1 AMPULE VIA NEBULIZER DAILY?
     Route: 055
     Dates: start: 20160319
  2. CETIRIZINE HCL [Concomitant]
  3. VITAMIN D3 [Concomitant]
     Active Substance: CHOLECALCIFEROL
  4. ENSURE PLUS [Concomitant]
  5. HUMALOG KWIKPEN [Concomitant]
     Active Substance: INSULIN LISPRO
  6. HYPERSAL [Concomitant]
  7. LANTUS SOLOSTAR [Concomitant]
     Active Substance: INSULIN GLARGINE
  8. MVW D5000 [Concomitant]
  9. NEXIUM [Concomitant]
  10. SODIUM CHLORIDE [Concomitant]
  11. ZENPEP [Concomitant]

REACTIONS (1)
  - COVID-19 [None]

NARRATIVE: CASE EVENT DATE: 20220613
